FAERS Safety Report 5390173-9 (Version None)
Quarter: 2007Q3

REPORT INFORMATION
  Report Type: 
  Country: None (occurrence: None)
  Receive Date: 20070716
  Receipt Date: 20070716
  Transmission Date: 20080115
  Serious: Yes (Other)
  Sender: FDA-Public Use
  Company Number: None

PATIENT
  Age: 55 Year
  Sex: Female
  Weight: 124 kg

DRUGS (1)
  1. INVANZ [Suspect]
     Dosage: 1 GRAM  Q24 HOURS  IV DRIP
     Route: 041
     Dates: start: 20070708, end: 20070711

REACTIONS (2)
  - HALLUCINATION [None]
  - MENTAL STATUS CHANGES [None]
